FAERS Safety Report 24062076 (Version 1)
Quarter: 2024Q3

REPORT INFORMATION
  Report Type: Spontaneous
  Country: IN (occurrence: IN)
  Receive Date: 20240708
  Receipt Date: 20240708
  Transmission Date: 20241017
  Serious: Yes (Hospitalization, Other)
  Sender: NOVARTIS
  Company Number: IN-002147023-NVSC2024IN139243

PATIENT
  Age: 53 Year
  Sex: Male

DRUGS (1)
  1. ASCIMINIB [Suspect]
     Active Substance: ASCIMINIB
     Indication: Chronic myeloid leukaemia
     Dosage: 40 MG, BID
     Route: 048
     Dates: start: 20240525

REACTIONS (5)
  - Haemoglobin decreased [Unknown]
  - Thrombosis [Unknown]
  - Platelet count decreased [Unknown]
  - Malaise [Unknown]
  - Pain [Unknown]
